FAERS Safety Report 6360542-9 (Version None)
Quarter: 2009Q3

REPORT INFORMATION
  Report Type: 
  Country: None (occurrence: None)
  Receive Date: 20090917
  Receipt Date: 20090903
  Transmission Date: 20100115
  Serious: Yes (Hospitalization, Other)
  Sender: FDA-Public Use
  Company Number: JP-PFIZER INC-2009258158

PATIENT
  Age: 34 Year

DRUGS (5)
  1. GABAPEN [Suspect]
     Indication: EPILEPSY
     Dosage: 200 MG, 3X/DAY
     Route: 048
     Dates: start: 20061003, end: 20061005
  2. CARBAMAZEPINE [Concomitant]
     Indication: COMPLEX PARTIAL SEIZURES
     Dosage: UNK
     Route: 048
  3. VALPROIC ACID [Concomitant]
     Indication: COMPLEX PARTIAL SEIZURES
     Dosage: UNK
  4. TEGRETOL [Concomitant]
     Indication: EPILEPSY
     Dosage: TWICE DAILY
     Dates: start: 20060724
  5. DEPAKENE [Concomitant]
     Indication: EPILEPSY
     Dosage: THREE TIMES DAILY
     Route: 048
     Dates: start: 20060724

REACTIONS (1)
  - STATUS EPILEPTICUS [None]
